FAERS Safety Report 5231276-9 (Version None)
Quarter: 2007Q1

REPORT INFORMATION
  Report Type: 
  Country: None (occurrence: None)
  Receive Date: 20070205
  Receipt Date: 20070205
  Transmission Date: 20070707
  Serious: Yes (Other)
  Sender: FDA-Public Use
  Company Number: None

PATIENT
  Age: 30 Year
  Sex: Female
  Weight: 52.6173 kg

DRUGS (1)
  1. VALIUM [Suspect]
     Indication: ANXIETY
     Dosage: 5MG TID PO
     Route: 048
     Dates: start: 19960101

REACTIONS (3)
  - DRUG EFFECT DECREASED [None]
  - PANIC ATTACK [None]
  - THERAPEUTIC RESPONSE UNEXPECTED WITH DRUG SUBSTITUTION [None]
